FAERS Safety Report 7241877-4 (Version None)
Quarter: 2011Q1

REPORT INFORMATION
  Report Type: 
  Country: None (occurrence: None)
  Receive Date: 20110124
  Receipt Date: 20110113
  Transmission Date: 20110831
  Serious: Yes (Hospitalization)
  Sender: FDA-Public Use
  Company Number: DE-BRISTOL-MYERS SQUIBB COMPANY-15500572

PATIENT
  Age: 65 Year
  Sex: Male
  Weight: 60 kg

DRUGS (11)
  1. METHYLPREDNISOLONE ACEPONATE [Concomitant]
     Indication: ERYTHEMA
     Dates: start: 20110110
  2. FOLIC ACID [Concomitant]
     Indication: PROPHYLAXIS
     Dates: start: 20101216
  3. SIMVASTATIN [Concomitant]
     Indication: PROPHYLAXIS
  4. TAVANIC [Concomitant]
     Indication: PYREXIA
     Dates: start: 20110111
  5. CETUXIMAB [Suspect]
     Indication: HEAD AND NECK CANCER
     Dosage: LOAD DOSE 400MG/M2 ON DAY 1 OF CYCLE 1:27DEC10-27DEC10,250MG/M2 WEEKLY ONG.RECENT DOSE:10JAN2011.
     Route: 042
     Dates: start: 20101227
  6. CISPLATIN [Suspect]
     Indication: HEAD AND NECK CANCER
     Dosage: ON DAY 1 EVERY 21 DAYS,MOST RECENT DOSE ON 27DEC2010.
     Route: 042
     Dates: start: 20101227
  7. ALIMTA [Suspect]
     Indication: HEAD AND NECK CANCER
     Dosage: ON DAY 1 EVERY 21 DAYS,MOST RECENT DOSE ON 27DEC2010.
     Route: 042
     Dates: start: 20101227
  8. PRAVASTATIN SODIUM [Concomitant]
     Indication: PROPHYLAXIS
     Dates: start: 20101227
  9. MAGNESIUM VERLA [Concomitant]
     Indication: HYPOMAGNESAEMIA
     Dates: start: 20110113
  10. VITAMIN B-12 [Concomitant]
     Indication: PROPHYLAXIS
     Dates: start: 20101216
  11. DEXAMETHASONE [Concomitant]
     Indication: PROPHYLAXIS
     Dates: start: 20101226

REACTIONS (1)
  - SYNCOPE [None]
